FAERS Safety Report 10347151 (Version 1)
Quarter: 2014Q3

REPORT INFORMATION
  Report Type: Spontaneous
  Country: US (occurrence: US)
  Receive Date: 20140729
  Receipt Date: 20140729
  Transmission Date: 20150326
  Serious: Yes (Other)
  Sender: FDA-Public Use
  Company Number: US-PFIZER INC-2014210113

PATIENT
  Sex: Male

DRUGS (2)
  1. LYRICA [Suspect]
     Active Substance: PREGABALIN
     Indication: NEUROPATHY PERIPHERAL
     Dosage: 150 MG, (2 75MG PILLS IN THE AM AND THE PM)
  2. LYRICA [Suspect]
     Active Substance: PREGABALIN
     Indication: OSTEOMYELITIS

REACTIONS (2)
  - Cerebrovascular accident [Unknown]
  - Extremity necrosis [Unknown]
